FAERS Safety Report 8369342-1 (Version None)
Quarter: 2012Q1

REPORT INFORMATION
  Report Type: 
  Country: None (occurrence: None)
  Receive Date: 20120323
  Receipt Date: 20111219
  Transmission Date: 20120608
  Serious: Yes (Hospitalization)
  Sender: FDA-Public Use
  Company Number: 163-21880-11112927

PATIENT
  Age: 77 Year
  Sex: Male
  Weight: 106.1417 kg

DRUGS (24)
  1. ASPIRIN [Concomitant]
  2. ACETAMINOPHEN [Concomitant]
  3. ALLOPURINOL [Concomitant]
  4. ACTOS [Concomitant]
  5. METOPROLOL TARTRATE [Concomitant]
  6. HYDROCHLOROTHIAZIDE [Concomitant]
  7. LEVOTHYROXINE SODIUM [Concomitant]
  8. REVLIMID [Suspect]
     Indication: MULTIPLE MYELOMA
     Dosage: 25 MG, DAILY FOR 21 DAYS, PO
     Route: 048
     Dates: start: 20080201, end: 20111001
  9. PLAVIX [Concomitant]
  10. TAMSULOSIN HCL [Concomitant]
  11. ZOLPIDEM [Concomitant]
  12. LUTEIN (XANTOFYL) [Concomitant]
  13. DECADRON [Concomitant]
  14. CALCIUM CARBONATE [Concomitant]
  15. TESTOSTERONE [Concomitant]
  16. MODIUM (LOPERAMIDE HYDROCHLORIDE) [Concomitant]
  17. ANDROGEL [Concomitant]
  18. TRAZODONE HCL [Concomitant]
  19. ROBITUSSIN (GUALIFENESIN) [Concomitant]
  20. MULTIVITAMIN [Concomitant]
  21. LISINOPRIL [Concomitant]
  22. PERCOCET [Concomitant]
  23. LOVASTATIN [Concomitant]
  24. NITROGLYCERIN [Concomitant]

REACTIONS (2)
  - CARDIAC DISORDER [None]
  - MULTIPLE MYELOMA [None]
